FAERS Safety Report 9453033 (Version 1)
Quarter: 2013Q3

REPORT INFORMATION
  Report Type: Spontaneous
  Country: US (occurrence: US)
  Receive Date: 20130812
  Receipt Date: 20130812
  Transmission Date: 20140515
  Serious: Yes (Other)
  Sender: FDA-Public Use
  Company Number: US-ELI_LILLY_AND_COMPANY-US201308001269

PATIENT
  Sex: Male

DRUGS (1)
  1. AXIRON [Suspect]
     Dosage: UNK
     Route: 061
     Dates: start: 2011

REACTIONS (1)
  - Deep vein thrombosis [Unknown]
